FAERS Safety Report 5302949-4 (Version None)
Quarter: 2007Q2

REPORT INFORMATION
  Report Type: 
  Country: None (occurrence: None)
  Receive Date: 20070417
  Receipt Date: 20070417
  Transmission Date: 20071010
  Serious: Yes (Other)
  Sender: FDA-Public Use
  Company Number: None

PATIENT
  Age: 59 Year
  Sex: Male
  Weight: 99.7913 kg

DRUGS (1)
  1. ALTACE [Suspect]
     Indication: HYPERTENSION
     Dosage: 1 PER DAY 1 PER DAY PO
     Route: 048
     Dates: start: 20070401, end: 20070403

REACTIONS (2)
  - MUSCLE SPASMS [None]
  - RASH GENERALISED [None]
